FAERS Safety Report 4622457-3 (Version None)
Quarter: 2005Q1

REPORT INFORMATION
  Report Type: 
  Country: None (occurrence: None)
  Receive Date: 20050317
  Receipt Date: 20040511
  Transmission Date: 20050727
  Serious: Yes (Hospitalization)
  Sender: FDA-Public Use
  Company Number: PHEH2004US04383

PATIENT
  Sex: Female

DRUGS (2)
  1. TRILEPTAL [Suspect]
     Indication: COMPLEX PARTIAL SEIZURES
     Dosage: ORAL
     Route: 048
  2. DILANTIN [Suspect]
     Indication: COMPLEX PARTIAL SEIZURES
     Dosage: ORAL
     Route: 048

REACTIONS (1)
  - HEADACHE [None]
